FAERS Safety Report 4703414-5 (Version None)
Quarter: 2005Q2

REPORT INFORMATION
  Report Type: 
  Country: None (occurrence: None)
  Receive Date: 20050629
  Receipt Date: 20050614
  Transmission Date: 20051028
  Serious: Yes (Death)
  Sender: FDA-Public Use
  Company Number: GBR-2005-0001730

PATIENT
  Age: 58 Year
  Sex: Male

DRUGS (9)
  1. MORPHINE SULFATE [Suspect]
     Indication: ANGINA PECTORIS
     Dosage: SEE IMAGE
     Route: 048
     Dates: end: 20050219
  2. MORPHINE SULFATE [Suspect]
     Indication: ANGINA PECTORIS
     Dosage: SEE IMAGE
     Route: 048
     Dates: start: 20050214
  3. DUROGESIC (FENTANYL) [Suspect]
     Indication: ANGINA PECTORIS
     Dosage: SEE IMAGE
     Route: 062
     Dates: end: 20050214
  4. DUROGESIC (FENTANYL) [Suspect]
     Indication: ANGINA PECTORIS
     Dosage: SEE IMAGE
     Route: 062
     Dates: start: 20050211
  5. COLCHICINE (COLCHICINE) [Concomitant]
  6. SEVELAMER (SEVELAMER) [Concomitant]
  7. PREDNISONE [Concomitant]
  8. ONE-ALPHA (ALFACALCIDOL) [Concomitant]
  9. WARFARIN SODIUM [Concomitant]

REACTIONS (5)
  - CARDIAC FAILURE [None]
  - HYPOTENSION [None]
  - PNEUMONIA [None]
  - RESPIRATORY DEPRESSION [None]
  - STUPOR [None]
